FAERS Safety Report 6235615-1 (Version None)
Quarter: 2009Q2

REPORT INFORMATION
  Report Type: 
  Country: None (occurrence: None)
  Receive Date: 20090616
  Receipt Date: 20090601
  Transmission Date: 20091009
  Serious: Yes (Other)
  Sender: FDA-Public Use
  Company Number: APP200900300

PATIENT
  Age: 64 Year
  Sex: Male

DRUGS (3)
  1. CEFTRIAXONE [Suspect]
     Indication: AORTITIS
     Dosage: 2 GM, 1 IN 12 HR, INTRAVENOUS
     Route: 042
  2. CEFTRIAXONE [Suspect]
     Indication: ENTEROCOCCAL INFECTION
     Dosage: 2 GM, 1 IN 12 HR, INTRAVENOUS
     Route: 042
  3. AMOXICILLIN [Concomitant]

REACTIONS (1)
  - CHOLELITHIASIS [None]
